FAERS Safety Report 21074159 (Version 1)
Quarter: 2022Q3

REPORT INFORMATION
  Report Type: Spontaneous
  Country: FR (occurrence: FR)
  Receive Date: 20220713
  Receipt Date: 20220713
  Transmission Date: 20221027
  Serious: Yes (Hospitalization, Other)
  Sender: FDA-Public Use
  Company Number: FR-BAUSCH-BL-2022-016818

PATIENT
  Age: 71 Year
  Sex: Female
  Weight: 76.3 kg

DRUGS (8)
  1. DILTIAZEM HYDROCHLORIDE [Suspect]
     Active Substance: DILTIAZEM HYDROCHLORIDE
     Indication: Product used for unknown indication
     Route: 048
     Dates: start: 20081221, end: 20081229
  2. DICLOFENAC SODIUM [Suspect]
     Active Substance: DICLOFENAC SODIUM
     Indication: Product used for unknown indication
     Route: 048
     Dates: start: 200812, end: 20090102
  3. DOMPERIDONE [Suspect]
     Active Substance: DOMPERIDONE
     Indication: Product used for unknown indication
     Route: 048
  4. FUROSEMIDE\SPIRONOLACTONE [Suspect]
     Active Substance: FUROSEMIDE\SPIRONOLACTONE
     Indication: Product used for unknown indication
     Route: 048
  5. INIPOMP [Suspect]
     Active Substance: PANTOPRAZOLE SODIUM
     Indication: Product used for unknown indication
     Route: 048
  6. PRAVASTATIN [Concomitant]
     Active Substance: PRAVASTATIN
     Indication: Product used for unknown indication
  7. BETAHISTINE [Concomitant]
     Active Substance: BETAHISTINE
     Indication: Product used for unknown indication
  8. TIANEPTINE [Concomitant]
     Active Substance: TIANEPTINE
     Indication: Product used for unknown indication

REACTIONS (8)
  - Basal cell carcinoma [Unknown]
  - Hyperkeratosis [Unknown]
  - Eosinophil count increased [Unknown]
  - Dermatitis exfoliative generalised [Not Recovered/Not Resolved]
  - Pruritus [Unknown]
  - Insomnia [Unknown]
  - Rash erythematous [Unknown]
  - Rash maculo-papular [Unknown]

NARRATIVE: CASE EVENT DATE: 20081230
